FAERS Safety Report 6761833-X (Version None)
Quarter: 2010Q2

REPORT INFORMATION
  Report Type: 
  Country: None (occurrence: None)
  Receive Date: 20100423
  Receipt Date: 20100413
  Transmission Date: 20101027
  Serious: Yes (Other)
  Sender: FDA-Public Use
  Company Number: AEUSA201000115

PATIENT

DRUGS (1)
  1. IMMUNE GLOBULIN (HUMAN) [Suspect]
     Indication: MYASTHENIA GRAVIS
     Dosage: IV
     Route: 042

REACTIONS (1)
  - RENAL FAILURE ACUTE [None]
